FAERS Safety Report 4283589-5 (Version None)
Quarter: 2004Q1

REPORT INFORMATION
  Report Type: 
  Country: None (occurrence: None)
  Receive Date: 20040121
  Receipt Date: 20030926
  Transmission Date: 20041129
  Serious: Yes (Hospitalization)
  Sender: FDA-Public Use
  Company Number: A03200302235

PATIENT
  Age: 91 Year
  Sex: Male
  Weight: 87.5442 kg

DRUGS (6)
  1. PLAVIX [Suspect]
     Indication: CEREBROVASCULAR ACCIDENT
     Dosage: 75 MG QD - ORAL
     Route: 048
     Dates: start: 20030501
  2. FUROSEMIDE [Concomitant]
  3. VALSARTAN [Concomitant]
  4. SIMVASTATIN [Concomitant]
  5. FISH OIL [Concomitant]
  6. POTASSIUM [Concomitant]

REACTIONS (2)
  - CEREBROVASCULAR ACCIDENT [None]
  - CONTUSION [None]
